FAERS Safety Report 13773030 (Version 1)
Quarter: 2017Q3

REPORT INFORMATION
  Report Type: Spontaneous
  Country: GB (occurrence: GB)
  Receive Date: 20170720
  Receipt Date: 20170720
  Transmission Date: 20171127
  Serious: Yes (Disabling)
  Sender: FDA-Public Use
  Company Number: GB-009507513-1707GBR007082

PATIENT
  Age: 24 Year
  Sex: Female

DRUGS (2)
  1. NEXPLANON [Suspect]
     Active Substance: ETONOGESTREL
     Indication: CONTRACEPTION
     Dosage: 68 MG, UNK
     Route: 059
  2. ALTRENOGEST [Suspect]
     Active Substance: ALTRENOGEST
     Dosage: UNK
     Route: 062

REACTIONS (3)
  - Potentiating drug interaction [Unknown]
  - Accidental exposure to product [Unknown]
  - Mood swings [Unknown]
